FAERS Safety Report 13213722 (Version 7)
Quarter: 2018Q1

REPORT INFORMATION
  Report Type: Report from Study
  Country: AU (occurrence: AU)
  Receive Date: 20170210
  Receipt Date: 20180212
  Transmission Date: 20180508
  Serious: Yes (Hospitalization)
  Sender: FDA-Public Use
  Company Number: AU-SA-2015SA136484

PATIENT
  Age: 33 Year
  Sex: Female

DRUGS (26)
  1. HEPARIN SODIUM. [Concomitant]
     Active Substance: HEPARIN SODIUM
     Indication: THROMBOSIS PROPHYLAXIS
     Dosage: DOSE:500 UNIT(S)
     Route: 040
  2. MOVICOL [Concomitant]
     Active Substance: POLYETHYLENE GLYCOL 3350\POTASSIUM CHLORIDE\SODIUM BICARBONATE\SODIUM CHLORIDE
  3. ALPRIM [Concomitant]
  4. HEPARIN SODIUM. [Concomitant]
     Active Substance: HEPARIN SODIUM
     Indication: THROMBOSIS PROPHYLAXIS
     Dosage: ADMINISTER 500UNITS/HR AS A MAINTENANCE DOSE WHILST ON THERAPEUTIC PLASMA EXCHANGE DOSE:500 UNIT(S)
     Route: 041
  5. HEPARIN SODIUM. [Concomitant]
     Active Substance: HEPARIN SODIUM
     Indication: THROMBOSIS PROPHYLAXIS
     Dosage: USE AS A LINE LOCK AFTER THERAPEUTIC PLASMA EXCHANGE: 1.6 ML IN ARTERIAL LUMEN.
     Route: 040
  6. MAGNESIUM ASPARTATE [Concomitant]
     Active Substance: MAGNESIUM ASPARTATE
     Indication: MINERAL SUPPLEMENTATION
     Dosage: 1 TABLET IN THE MORNING
  7. CLOFEN [Concomitant]
  8. LEMTRADA [Suspect]
     Active Substance: ALEMTUZUMAB
     Indication: MULTIPLE SCLEROSIS RELAPSE
     Route: 041
     Dates: start: 20160530, end: 20160601
  9. IRON POLYMALTOSE [Concomitant]
     Active Substance: IRON POLYMALTOSE
     Indication: MINERAL SUPPLEMENTATION
     Route: 042
  10. BIOGLAN [Concomitant]
  11. CALCITRIOL. [Concomitant]
     Active Substance: CALCITRIOL
     Indication: BLOOD CALCIUM DECREASED
     Dosage: 2 CAPSULES IN THE MORNING
  12. LEMTRADA [Suspect]
     Active Substance: ALEMTUZUMAB
     Indication: MULTIPLE SCLEROSIS RELAPSE
     Route: 041
     Dates: start: 20150518, end: 20150522
  13. HEPARIN SODIUM. [Concomitant]
     Active Substance: HEPARIN SODIUM
     Indication: THROMBOSIS PROPHYLAXIS
     Dosage: USE AS A LINE LOCK AFTER THERAPEUTIC PLASMA EXCHANGE: 1.6 ML IN VENOUS LUMEN
     Route: 040
  14. MICROLAX [Concomitant]
  15. LEVLEN [Concomitant]
     Active Substance: ETHINYL ESTRADIOL\LEVONORGESTREL
     Indication: PROPHYLAXIS
     Route: 048
     Dates: start: 201411
  16. SOMAC [Concomitant]
     Active Substance: PANTOPRAZOLE SODIUM
     Indication: PROPHYLAXIS
     Dosage: 1 TABLET IN THE MORNING
  17. DYMADON [Concomitant]
     Indication: PAIN
     Dosage: TAKE 2 TABLETS 4 TIMES A DAY WHEN REQUIRED
  18. DOCUSATE SODIUM/SENNA [Concomitant]
  19. AMINOPYRIDINE [Concomitant]
     Active Substance: DALFAMPRIDINE
     Indication: PROPHYLAXIS
     Route: 048
     Dates: start: 201501
  20. HEPARIN SODIUM. [Concomitant]
     Active Substance: HEPARIN SODIUM
     Indication: THROMBOSIS PROPHYLAXIS
     Dosage: DOSE:1000 UNIT(S)
     Route: 040
  21. MICROGYNON [Concomitant]
     Active Substance: ETHINYL ESTRADIOL\LEVONORGESTREL ACETATE
     Indication: CONTRACEPTION
     Dosage: 1 TABLET AT NIGHT- AIM TO TAKE SAME TIME EVERY DAY
  22. PANTHENOL/RETINOL/THIAMINE HYDROCHLORIDE/ASCORBIC ACID/ERGOCALCIFEROL/FOLIC ACID/RIBOFLAVIN/NICOTINA [Concomitant]
     Dosage: 1 TABLET IN THE MORNING WITH FOOD.
  23. AMINOPYRIDINE [Concomitant]
     Active Substance: DALFAMPRIDINE
  24. CALCIUM GLUCONATE. [Concomitant]
     Active Substance: CALCIUM GLUCONATE
     Indication: PROPHYLAXIS
     Route: 041
  25. OSTELIN [Concomitant]
  26. MAGNESIUM [Concomitant]
     Active Substance: MAGNESIUM

REACTIONS (15)
  - Muscular weakness [Recovered/Resolved]
  - Vitreous floaters [Recovered/Resolved]
  - Muscle spasticity [Not Recovered/Not Resolved]
  - Fatigue [Not Recovered/Not Resolved]
  - Anaemia [Not Recovered/Not Resolved]
  - Goodpasture^s syndrome [Recovering/Resolving]
  - Nausea [Recovered/Resolved]
  - Hypoaesthesia [Recovered/Resolved]
  - Anal incontinence [Recovered/Resolved]
  - Pain in extremity [Recovered/Resolved]
  - Rash generalised [Recovered/Resolved]
  - Muscular weakness [Recovered/Resolved]
  - Muscle spasms [Recovered/Resolved]
  - Limb discomfort [Not Recovered/Not Resolved]
  - Upper respiratory tract infection [Recovered/Resolved]

NARRATIVE: CASE EVENT DATE: 20150518
